FAERS Safety Report 8596430 (Version 5)
Quarter: 2014Q2

REPORT INFORMATION
  Report Type: Spontaneous
  Country: US (occurrence: US)
  Receive Date: 20120605
  Receipt Date: 20140422
  Transmission Date: 20141212
  Serious: Yes (Hospitalization, Disabling, Other)
  Sender: FDA-Public Use
  Company Number: US-ASTRAZENECA-2012SE35841

PATIENT
  Age: 46 Year
  Sex: Female

DRUGS (32)
  1. NEXIUM [Suspect]
     Indication: GASTRIC DISORDER
     Route: 048
     Dates: start: 20010709
  2. NEXIUM [Suspect]
     Indication: GASTRIC DISORDER
     Route: 048
     Dates: start: 200107, end: 2013
  3. NEXIUM [Suspect]
     Indication: GASTRIC DISORDER
     Route: 048
     Dates: start: 20040729
  4. NEXIUM [Suspect]
     Indication: GASTRIC DISORDER
     Route: 048
  5. NEURONTIN [Concomitant]
     Dates: start: 200107
  6. ACCUPRIL [Concomitant]
     Dates: start: 200107
  7. CALAN SR [Concomitant]
     Dates: start: 200107
  8. PREMARIN [Concomitant]
     Dates: start: 200107
  9. HCTZ [Concomitant]
     Dates: start: 200107
  10. KDUR [Concomitant]
     Dates: start: 200107
  11. PREVACID [Concomitant]
     Dates: end: 20010709
  12. ACIPHEX [Concomitant]
  13. ASPIRIN [Concomitant]
     Dates: start: 2004
  14. LIPITOR [Concomitant]
     Indication: BLOOD CHOLESTEROL
  15. LYRICA [Concomitant]
     Indication: NEUROPATHY PERIPHERAL
     Dosage: 10
  16. LYRICA [Concomitant]
     Indication: NEUROPATHY PERIPHERAL
  17. OMEPRAZOLE [Concomitant]
     Indication: GASTRIC DISORDER
  18. HYOSCYAMINE [Concomitant]
     Indication: ABDOMINAL PAIN
  19. HYOSCYAMINE [Concomitant]
     Indication: MUSCLE SPASMS
  20. METHOCARBAMOL [Concomitant]
     Indication: MUSCLE RELAXANT THERAPY
     Dosage: AS NEEDED
  21. METHOCARBAMOL [Concomitant]
     Indication: NECK PAIN
     Dosage: AS NEEDED
  22. ONDANSETRON [Concomitant]
     Indication: NAUSEA
     Dosage: 4 MG AS NEEDED
  23. NAPROXEN [Concomitant]
     Indication: NECK PAIN
  24. PRAVACHOL [Concomitant]
     Dates: start: 20120119
  25. PLAVIX [Concomitant]
     Dates: start: 20120119
  26. WELLBUTRIN [Concomitant]
     Dates: start: 20120119
  27. NORVASC [Concomitant]
     Dates: start: 20120119
  28. BENICAR [Concomitant]
     Dates: start: 20120119
  29. MELOXICAM [Concomitant]
     Dates: start: 20090821
  30. AMITRIPTYLINE [Concomitant]
     Dates: start: 20081122
  31. PANTOPRAZOLE [Concomitant]
     Indication: GASTRIC DISORDER
     Dates: start: 20121010
  32. FLUCONAZOLE [Concomitant]
     Dates: start: 20121011

REACTIONS (20)
  - Osteoporosis [Unknown]
  - Diabetes mellitus [Unknown]
  - Myocardial infarction [Unknown]
  - Activities of daily living impaired [Unknown]
  - Arterial occlusive disease [Unknown]
  - Platelet count increased [Unknown]
  - Carpal tunnel syndrome [Unknown]
  - Gastric disorder [Unknown]
  - Pain [Unknown]
  - Neuropathy peripheral [Unknown]
  - Myocardial infarction [Unknown]
  - Diastolic dysfunction [Unknown]
  - Foot fracture [Unknown]
  - Ankle fracture [Unknown]
  - Sleep disorder [Unknown]
  - Cataract [Unknown]
  - Arthritis [Unknown]
  - Coronary artery disease [Unknown]
  - Fibula fracture [Unknown]
  - Osteoarthritis [Unknown]
